FAERS Safety Report 7844875-2 (Version None)
Quarter: 2011Q4

REPORT INFORMATION
  Report Type: 
  Country: None (occurrence: None)
  Receive Date: 20111025
  Receipt Date: 20111019
  Transmission Date: 20120403
  Serious: Yes (Hospitalization)
  Sender: FDA-Public Use
  Company Number: DE-GLAXOSMITHKLINE-D0073104A

PATIENT
  Sex: Male

DRUGS (2)
  1. MARCUMAR [Concomitant]
     Route: 065
  2. ARIXTRA [Suspect]
     Indication: DEEP VEIN THROMBOSIS
     Route: 058
     Dates: start: 20110921, end: 20110923

REACTIONS (3)
  - DRUG ERUPTION [None]
  - SKIN PLAQUE [None]
  - PRURITUS GENERALISED [None]
